FAERS Safety Report 10231550 (Version 2)
Quarter: 2014Q2

REPORT INFORMATION
  Report Type: Spontaneous
  Country: IT (occurrence: IT)
  Receive Date: 20140611
  Receipt Date: 20140611
  Transmission Date: 20141212
  Serious: Yes (Other)
  Sender: FDA-Public Use
  Company Number: IT-LUNDBECK-DKLU1099791

PATIENT
  Age: 41 Year
  Sex: Male

DRUGS (1)
  1. SABRIL     (TABLET) [Suspect]
     Indication: EPILEPSY
     Route: 048

REACTIONS (1)
  - Retinopathy [Not Recovered/Not Resolved]
